FAERS Safety Report 10255851 (Version 6)
Quarter: 2014Q4

REPORT INFORMATION
  Report Type: Spontaneous
  Country: US (occurrence: US)
  Receive Date: 20140624
  Receipt Date: 20141212
  Transmission Date: 20150528
  Serious: Yes (Hospitalization, Disabling, Other)
  Sender: FDA-Public Use
  Company Number: US-009507513-1406USA009611

PATIENT
  Sex: Female
  Weight: 79.37 kg

DRUGS (7)
  1. ALENDRONATE SODIUM. [Suspect]
     Active Substance: ALENDRONATE SODIUM
     Indication: OSTEOPENIA
  2. VITAMINS (UNSPECIFIED) [Concomitant]
     Active Substance: VITAMINS
     Dosage: 1 DF, QD
     Dates: start: 1999, end: 2014
  3. FOSAMAX PLUS D [Suspect]
     Active Substance: ALENDRONATE SODIUM\CHOLECALCIFEROL
     Indication: OSTEOPENIA
  4. FOSAMAX [Suspect]
     Active Substance: ALENDRONATE SODIUM
     Indication: OSTEOPENIA
     Dosage: 70 MG, QW
     Route: 048
     Dates: start: 200105
  5. FOSAMAX PLUS D [Suspect]
     Active Substance: ALENDRONATE SODIUM\CHOLECALCIFEROL
     Indication: OSTEOPOROSIS
     Dosage: 70 MG, QW
     Route: 048
     Dates: start: 20060403, end: 200806
  6. ALENDRONATE SODIUM. [Suspect]
     Active Substance: ALENDRONATE SODIUM
     Indication: OSTEOPOROSIS
     Dosage: 70 MG, QW
     Route: 048
     Dates: start: 20080725
  7. FOSAMAX [Suspect]
     Active Substance: ALENDRONATE SODIUM
     Indication: OSTEOPOROSIS
     Dosage: 10 MG, QD
     Route: 048
     Dates: start: 20000807, end: 200104

REACTIONS (47)
  - Cerebrovascular accident [Unknown]
  - Knee arthroplasty [Unknown]
  - Peptic ulcer [Unknown]
  - Urine output decreased [Unknown]
  - Drug ineffective [Unknown]
  - Carotid endarterectomy [Unknown]
  - Osteoarthritis [Unknown]
  - Urinary tract infection [Unknown]
  - Gastrointestinal haemorrhage [Unknown]
  - Low turnover osteopathy [Not Recovered/Not Resolved]
  - Hypertension [Unknown]
  - Osteoarthritis [Unknown]
  - Arteriosclerosis coronary artery [Unknown]
  - Benign breast neoplasm [Unknown]
  - Large intestine polyp [Unknown]
  - Gastrooesophageal reflux disease [Unknown]
  - Intramedullary rod insertion [Unknown]
  - Anaemia [Unknown]
  - Carotid artery stenosis [Unknown]
  - Femur fracture [Not Recovered/Not Resolved]
  - Mitral valve prolapse [Unknown]
  - Malnutrition [Unknown]
  - Arthritis [Unknown]
  - Ulcer haemorrhage [Unknown]
  - Hypokalaemia [Unknown]
  - Hypokalaemia [Unknown]
  - Extraskeletal ossification [Unknown]
  - Scapula fracture [Unknown]
  - Transient ischaemic attack [Unknown]
  - Fatigue [Unknown]
  - Device dislocation [Unknown]
  - Bursitis [Unknown]
  - Joint effusion [Unknown]
  - Nausea [Unknown]
  - Femur fracture [Not Recovered/Not Resolved]
  - Transfusion [Unknown]
  - Sinus disorder [Unknown]
  - Adverse event [Unknown]
  - Appendicectomy [Unknown]
  - Nasal septal operation [Unknown]
  - Hypercholesterolaemia [Unknown]
  - Blood calcium increased [Recovered/Resolved]
  - Hyponatraemia [Unknown]
  - Intramedullary rod insertion [Unknown]
  - Hiatus hernia [Unknown]
  - Benign breast lump removal [Unknown]
  - Hypotension [Unknown]

NARRATIVE: CASE EVENT DATE: 2000
